FAERS Safety Report 7334477-9 (Version None)
Quarter: 2011Q1

REPORT INFORMATION
  Report Type: 
  Country: None (occurrence: None)
  Receive Date: 20110307
  Receipt Date: 20110221
  Transmission Date: 20110831
  Serious: Yes (Other)
  Sender: FDA-Public Use
  Company Number: DE-PFIZER INC-2011046017

PATIENT
  Age: 63 Year
  Sex: Male

DRUGS (3)
  1. CORDAREX [Suspect]
     Indication: CONGESTIVE CARDIOMYOPATHY
     Dosage: 800 MG, ONCE
     Route: 048
     Dates: start: 20110220, end: 20110220
  2. RAMIPRIL [Concomitant]
     Dosage: UNK
  3. BISOPROLOL [Concomitant]
     Dosage: UNK

REACTIONS (3)
  - HEPATOCELLULAR INJURY [None]
  - BLOOD LACTATE DEHYDROGENASE INCREASED [None]
  - NAUSEA [None]
